FAERS Safety Report 7466914-3 (Version None)
Quarter: 2011Q2

REPORT INFORMATION
  Report Type: 
  Country: None (occurrence: None)
  Receive Date: 20110428
  Receipt Date: 20110425
  Transmission Date: 20111010
  Serious: Yes (Hospitalization)
  Sender: FDA-Public Use
  Company Number: CIP11001040

PATIENT
  Age: 76 Year
  Sex: Female
  Weight: 55 kg

DRUGS (1)
  1. ACTONEL [Suspect]
     Dosage: 35 MG ONCE A WEEK, ORAL
     Route: 048

REACTIONS (2)
  - FEMUR FRACTURE [None]
  - LIMB INJURY [None]
